FAERS Safety Report 13348269 (Version 2)
Quarter: 2017Q1

REPORT INFORMATION
  Report Type: Spontaneous
  Country: US (occurrence: US)
  Receive Date: 20170319
  Receipt Date: 20170329
  Transmission Date: 20170428
  Serious: No
  Sender: FDA-Public Use
  Company Number: US-BEH-2017078896

PATIENT
  Age: 36 Year
  Sex: Female

DRUGS (2)
  1. HIZENTRA [Suspect]
     Active Substance: HUMAN IMMUNOGLOBULIN G
     Indication: HYPOGAMMAGLOBULINAEMIA
     Dosage: 10 G, QW
     Route: 058
     Dates: start: 2013
  2. HIZENTRA [Suspect]
     Active Substance: HUMAN IMMUNOGLOBULIN G
     Dosage: 15 G, QW
     Route: 058
     Dates: start: 201703

REACTIONS (1)
  - Blood immunoglobulin G decreased [Recovering/Resolving]

NARRATIVE: CASE EVENT DATE: 20170310
